FAERS Safety Report 8512016-4 (Version None)
Quarter: 2012Q2

REPORT INFORMATION
  Report Type: 
  Country: None (occurrence: None)
  Receive Date: 20120406
  Receipt Date: 20100401
  Transmission Date: 20120825
  Serious: Yes (Death)
  Sender: FDA-Public Use
  Company Number: PHEH2010US03356

PATIENT
  Age: 69 Year
  Sex: Male
  Weight: 66.3 kg

DRUGS (17)
  1. TASIGNA [Suspect]
     Indication: GASTROINTESTINAL STROMAL TUMOUR
     Dosage: 400 MG, BID, ORAL
     Route: 048
     Dates: start: 20100122
  2. MECLIZINE [Concomitant]
  3. ZOFRAN [Concomitant]
  4. PROCHLORPERAZINE MALEATE [Concomitant]
  5. CAPTOPRIL [Concomitant]
  6. POTASSIUM CHLORIDE [Concomitant]
  7. LOVASTATIN [Concomitant]
  8. FLUCONAZOLE [Concomitant]
  9. OMEPRAZOLE [Concomitant]
  10. DIOVAN [Concomitant]
  11. PIROXICAM [Concomitant]
  12. NYSTATIN [Concomitant]
  13. SENNA (SENNA, SENNA ALEXANDRINA) [Concomitant]
  14. VITAMIN TAB [Concomitant]
  15. CARDURA [Concomitant]
  16. VICODIN [Concomitant]
  17. DOCUSATE (DOCUSATE) [Concomitant]

REACTIONS (3)
  - GASTROINTESTINAL STROMAL TUMOUR [None]
  - NEOPLASM RECURRENCE [None]
  - NEOPLASM MALIGNANT [None]
